FAERS Safety Report 8064295-8 (Version None)
Quarter: 2012Q1

REPORT INFORMATION
  Report Type: 
  Country: None (occurrence: None)
  Receive Date: 20120123
  Receipt Date: 20120119
  Transmission Date: 20120608
  Serious: Yes (Other)
  Sender: FDA-Public Use
  Company Number: CA-BAYER-2011-121172

PATIENT
  Age: 29 Year
  Sex: Male

DRUGS (1)
  1. LEVITRA [Suspect]
     Indication: ERECTILE DYSFUNCTION
     Dosage: UNK, ONCE
     Route: 065
     Dates: start: 20110301

REACTIONS (3)
  - PENILE VASCULAR DISORDER [None]
  - TESTICULAR DISORDER [None]
  - PENILE PAIN [None]
